FAERS Safety Report 5532894-0 (Version None)
Quarter: 2007Q4

REPORT INFORMATION
  Report Type: 
  Country: None (occurrence: None)
  Receive Date: 20071119
  Receipt Date: 20071001
  Transmission Date: 20080405
  Serious: No
  Sender: FDA-Public Use
  Company Number: TPA2007A02020

PATIENT
  Age: 56 Year
  Sex: Female
  Weight: 47.6277 kg

DRUGS (5)
  1. ROZEREM [Suspect]
     Indication: INITIAL INSOMNIA
     Dosage: 8 MG, QHS, PER ORAL
     Route: 048
     Dates: start: 20070913, end: 20070914
  2. ROZEREM [Suspect]
     Indication: INSOMNIA
     Dosage: 8 MG, QHS, PER ORAL
     Route: 048
     Dates: start: 20070913, end: 20070914
  3. PREDNSONE (PREDNISONE) [Concomitant]
  4. DICLOFENAC (DICLOFENAC) [Concomitant]
  5. AMBIEN CR [Concomitant]

REACTIONS (3)
  - FEELING ABNORMAL [None]
  - INITIAL INSOMNIA [None]
  - POOR QUALITY SLEEP [None]
